FAERS Safety Report 22137204 (Version 3)
Quarter: 2023Q2

REPORT INFORMATION
  Report Type: Spontaneous
  Country: IT (occurrence: IT)
  Receive Date: 20230324
  Receipt Date: 20230414
  Transmission Date: 20230721
  Serious: Yes (Death, Hospitalization, Other)
  Sender: FDA-Public Use
  Company Number: IT-MYLANLABS-2023M1026809

PATIENT
  Age: 56 Year
  Sex: Male

DRUGS (8)
  1. PEMETREXED [Suspect]
     Active Substance: PEMETREXED
     Indication: Peritoneal mesothelioma malignant
     Dosage: , CYCLE (6 CYCLES)
     Route: 065
     Dates: start: 201908, end: 202001
  2. PEMETREXED [Suspect]
     Active Substance: PEMETREXED
     Indication: Epithelioid mesothelioma
  3. ACETYLCYSTEINE [Suspect]
     Active Substance: ACETYLCYSTEINE
     Indication: Supportive care
     Dosage: 1 DOSAGE FORM, ONCE A DAY
     Route: 048
  4. ACETYLCYSTEINE [Suspect]
     Active Substance: ACETYLCYSTEINE
     Indication: Pleural mesothelioma malignant
  5. CARBOPLATIN [Suspect]
     Active Substance: CARBOPLATIN
     Indication: Pleural mesothelioma malignant
     Dosage: CYCLE (FOR 6 CYCLES)
     Route: 065
     Dates: start: 201908, end: 202001
  6. CARBOPLATIN [Suspect]
     Active Substance: CARBOPLATIN
     Indication: Epithelioid mesothelioma
  7. VITAMIN D [Suspect]
     Active Substance: VITAMIN D NOS
     Indication: Pleural mesothelioma malignant
     Dosage: 1 DOSAGE FORM, 1 MONTH (VIAL)
     Route: 048
  8. VITAMIN C [Suspect]
     Active Substance: ASCORBIC ACID
     Indication: Pleural mesothelioma malignant
     Dosage: 3 DOSAGE FORM, ONCE A DAY (VIAL)
     Route: 042

REACTIONS (5)
  - Disease progression [Fatal]
  - Drug ineffective [Fatal]
  - Acute kidney injury [Recovering/Resolving]
  - Fatigue [Unknown]
  - Cancer fatigue [Unknown]

NARRATIVE: CASE EVENT DATE: 20200401
